FAERS Safety Report 6061621-6 (Version None)
Quarter: 2009Q1

REPORT INFORMATION
  Report Type: 
  Country: None (occurrence: None)
  Receive Date: 20090202
  Receipt Date: 20090127
  Transmission Date: 20090719
  Serious: Yes (Death)
  Sender: FDA-Public Use
  Company Number: A0755100A

PATIENT
  Age: 35 Year
  Sex: Female
  Weight: 116.4 kg

DRUGS (3)
  1. ADVAIR DISKUS 100/50 [Suspect]
     Indication: ASTHMA
     Route: 055
  2. HYDROCORTISONE [Concomitant]
  3. ALBUTEROL SULATE [Concomitant]

REACTIONS (9)
  - ARRHYTHMIA [None]
  - ASTHMA [None]
  - BONE DENSITY DECREASED [None]
  - CONJUNCTIVITIS [None]
  - HEADACHE [None]
  - HYPERTENSION [None]
  - MENSTRUATION IRREGULAR [None]
  - MYALGIA [None]
  - TACHYCARDIA [None]
